FAERS Safety Report 18513952 (Version 1)
Quarter: 2020Q4

REPORT INFORMATION
  Report Type: Spontaneous
  Country: NL (occurrence: NL)
  Receive Date: 20201118
  Receipt Date: 20201118
  Transmission Date: 20210114
  Serious: Yes (Life-Threatening, Hospitalization, Other)
  Sender: FDA-Public Use
  Company Number: NL-AUROBINDO-AUR-APL-2020-056710

PATIENT
  Age: 43 Year
  Sex: Male

DRUGS (2)
  1. VENLAFAXINE [Concomitant]
     Active Substance: VENLAFAXINE HYDROCHLORIDE
     Indication: PRODUCT USED FOR UNKNOWN INDICATION
     Dosage: 75 MILLIGRAM, ONCE A DAY (75 MG)
     Route: 065
     Dates: end: 2020
  2. LAMITRIGINE DISPERSIBLE TABLETS 50MG [Suspect]
     Active Substance: LAMOTRIGINE
     Indication: DEPERSONALISATION/DEREALISATION DISORDER
     Dosage: UNK
     Route: 065
     Dates: start: 20200801

REACTIONS (1)
  - Haemophagocytic lymphohistiocytosis [Unknown]

NARRATIVE: CASE EVENT DATE: 20200820
